FAERS Safety Report 9051400 (Version 3)
Quarter: 2013Q1

REPORT INFORMATION
  Report Type: Spontaneous
  Country: MX (occurrence: MX)
  Receive Date: 20130206
  Receipt Date: 20130313
  Transmission Date: 20140127
  Serious: Yes (Hospitalization)
  Sender: FDA-Public Use
  Company Number: MX-B.I. PHARMACEUTICALS,INC./RIDGEFIELD-2013-MX-00013MX

PATIENT
  Age: 79 Year
  Sex: Male
  Weight: 83 kg

DRUGS (4)
  1. TRAJENTA [Suspect]
     Indication: TYPE 2 DIABETES MELLITUS
     Dosage: STRENGTH: 2.5/500MG DAILY DOSE: 1 TABLET
     Route: 048
     Dates: start: 20121207, end: 20121213
  2. TELMISARTAN [Suspect]
     Indication: HYPERTENSION
     Dosage: 80 MG
     Route: 048
     Dates: start: 2011, end: 20121221
  3. SIMVASTATINA [Concomitant]
     Indication: DYSLIPIDAEMIA
     Dosage: 10 MG
     Route: 048
     Dates: start: 2011, end: 20121221
  4. OMEPRAZOL [Concomitant]
     Indication: GASTRITIS
     Dosage: 20 MG
     Route: 048
     Dates: start: 2011, end: 20121221

REACTIONS (6)
  - Skin ulcer [Not Recovered/Not Resolved]
  - Erythema multiforme [Not Recovered/Not Resolved]
  - Lymphoedema [Not Recovered/Not Resolved]
  - Diarrhoea [Recovered/Resolved]
  - Stevens-Johnson syndrome [None]
  - Infected skin ulcer [None]
